FAERS Safety Report 5087019-5 (Version None)
Quarter: 2006Q3

REPORT INFORMATION
  Report Type: 
  Country: None (occurrence: None)
  Receive Date: 20060821
  Receipt Date: 20060804
  Transmission Date: 20061208
  Serious: Yes (Other)
  Sender: FDA-Public Use
  Company Number: DEP_0005_2006

PATIENT
  Sex: Female

DRUGS (1)
  1. METFORMIN [Suspect]
     Dosage: DF

REACTIONS (5)
  - DIARRHOEA [None]
  - HAEMOGLOBIN DECREASED [None]
  - MALABSORPTION [None]
  - MEAN CELL VOLUME ABNORMAL [None]
  - VITAMIN B12 DEFICIENCY [None]
